FAERS Safety Report 15720141 (Version 1)
Quarter: 2018Q4

REPORT INFORMATION
  Report Type: Spontaneous
  Country: DE (occurrence: DE)
  Receive Date: 20181213
  Receipt Date: 20181213
  Transmission Date: 20190205
  Serious: Yes (Other)
  Sender: FDA-Public Use
  Company Number: DE-MYLANLABS-2018M1092406

PATIENT
  Age: 74 Year
  Sex: Male

DRUGS (3)
  1. CAPECITABINE. [Suspect]
     Active Substance: CAPECITABINE
     Indication: METASTASES TO LIVER
     Dosage: 500 MG, BID (2?0-2) 5 DAYS/WEEK
     Route: 065
     Dates: start: 201605, end: 201609
  2. CISPLATIN. [Concomitant]
     Active Substance: CISPLATIN
     Indication: PRODUCT USED FOR UNKNOWN INDICATION
     Dosage: UNK
     Route: 065
  3. GEMCITABINE [Suspect]
     Active Substance: GEMCITABINE\GEMCITABINE HYDROCHLORIDE
     Indication: METASTASES TO LIVER
     Dosage: 1000 MG/GM, D1?8 15
     Route: 065
     Dates: start: 201512, end: 201603

REACTIONS (2)
  - Treatment failure [Unknown]
  - Malignant neoplasm progression [Recovered/Resolved]
